FAERS Safety Report 8505082-3 (Version None)
Quarter: 2012Q3

REPORT INFORMATION
  Report Type: 
  Country: None (occurrence: None)
  Receive Date: 20120702
  Receipt Date: 20120614
  Transmission Date: 20120928
  Serious: Yes (Disabling)
  Sender: FDA-Public Use
  Company Number: JPI-P-022070

PATIENT
  Age: 60 Year
  Sex: Female
  Weight: 83.9154 kg

DRUGS (3)
  1. XYREM [Suspect]
     Indication: NARCOLEPSY
     Dosage: ORAL 6 GM (3 GM, 2 IN 1 D), ORAL
     Route: 048
     Dates: start: 20070801
  2. LEVOTHYROXINE SODIUM [Concomitant]
  3. FLUTICASONE PROPIONATE [Concomitant]

REACTIONS (13)
  - DEAFNESS NEUROSENSORY [None]
  - TINNITUS [None]
  - HEADACHE [None]
  - HYPOAESTHESIA [None]
  - UPPER RESPIRATORY TRACT INFECTION [None]
  - NAUSEA [None]
  - FATIGUE [None]
  - PYREXIA [None]
  - BLOOD PRESSURE DECREASED [None]
  - FEELING OF BODY TEMPERATURE CHANGE [None]
  - ANXIETY [None]
  - PAIN [None]
  - DRY MOUTH [None]
